FAERS Safety Report 8513118-9 (Version None)
Quarter: 2012Q3

REPORT INFORMATION
  Report Type: 
  Country: None (occurrence: None)
  Receive Date: 20120716
  Receipt Date: 20120625
  Transmission Date: 20120928
  Serious: No
  Sender: FDA-Public Use
  Company Number: US-ASTRAZENECA-2012SE15431

PATIENT
  Age: 47 Year
  Sex: Male

DRUGS (1)
  1. ZOMIG [Suspect]
     Route: 048

REACTIONS (5)
  - INFLUENZA LIKE ILLNESS [None]
  - RHEUMATOID ARTHRITIS [None]
  - MALAISE [None]
  - MIGRAINE [None]
  - DRUG DOSE OMISSION [None]
